FAERS Safety Report 17855936 (Version 1)
Quarter: 2020Q2

REPORT INFORMATION
  Report Type: Spontaneous
  Country: GB (occurrence: GB)
  Receive Date: 20200603
  Receipt Date: 20200603
  Transmission Date: 20200714
  Serious: Yes (Other)
  Sender: FDA-Public Use
  Company Number: GB-TEVA-2020-GB-1243225

PATIENT
  Age: 51 Year
  Sex: Male

DRUGS (9)
  1. OMEPRAZOLE. [Concomitant]
     Active Substance: OMEPRAZOLE
  2. WARFARIN SODIUM. [Suspect]
     Active Substance: WARFARIN SODIUM
     Indication: EMBOLISM VENOUS
     Route: 048
  3. FLUOXETINE HYDROCHLORIDE. [Concomitant]
     Active Substance: FLUOXETINE HYDROCHLORIDE
  4. FOLIC ACID. [Concomitant]
     Active Substance: FOLIC ACID
  5. BACLOFEN. [Concomitant]
     Active Substance: BACLOFEN
  6. PARACETAMOL DC [Concomitant]
  7. PREGABALIN MYLAN [Concomitant]
     Active Substance: PREGABALIN
  8. PHENYTOIN. [Concomitant]
     Active Substance: PHENYTOIN
  9. MIRTAZAPINE HEMIHYDRATE [Concomitant]
     Active Substance: MIRTAZAPINE

REACTIONS (4)
  - Vomiting [Unknown]
  - Aspartate aminotransferase increased [Unknown]
  - Malaise [Unknown]
  - International normalised ratio increased [Not Recovered/Not Resolved]
